FAERS Safety Report 25770961 (Version 3)
Quarter: 2025Q4

REPORT INFORMATION
  Report Type: Spontaneous
  Country: CA (occurrence: CA)
  Receive Date: 20250908
  Receipt Date: 20251020
  Transmission Date: 20260118
  Serious: Yes (Other)
  Sender: ROCHE
  Company Number: CA-ROCHE-10000380258

PATIENT
  Age: 67 Year
  Sex: Female

DRUGS (17)
  1. RITUXIMAB [Suspect]
     Active Substance: RITUXIMAB
     Indication: Burkitt^s lymphoma
     Route: 065
  2. CYCLOPHOSPHAMIDE [Suspect]
     Active Substance: CYCLOPHOSPHAMIDE
     Indication: Burkitt^s lymphoma
     Route: 065
  3. CYTARABINE [Suspect]
     Active Substance: CYTARABINE
     Indication: Burkitt^s lymphoma
     Route: 029
  4. CYTARABINE [Suspect]
     Active Substance: CYTARABINE
     Indication: Metastases to meninges
     Route: 029
  5. DOXORUBICIN HYDROCHLORIDE [Suspect]
     Active Substance: DOXORUBICIN HYDROCHLORIDE
     Indication: Burkitt^s lymphoma
     Route: 065
  6. DOXORUBICIN HYDROCHLORIDE [Suspect]
     Active Substance: DOXORUBICIN HYDROCHLORIDE
     Route: 065
  7. METHOTREXATE [Suspect]
     Active Substance: METHOTREXATE
     Indication: Burkitt^s lymphoma
     Route: 029
  8. METHOTREXATE [Suspect]
     Active Substance: METHOTREXATE
     Indication: Metastases to meninges
  9. HYDROCORTISONE [Suspect]
     Active Substance: HYDROCORTISONE
     Indication: Burkitt^s lymphoma
     Route: 029
  10. VINCRISTINE [Suspect]
     Active Substance: VINCRISTINE
     Indication: Burkitt^s lymphoma
     Route: 065
  11. HYDROCORTISONE [Suspect]
     Active Substance: HYDROCORTISONE
     Indication: Metastases to meninges
     Route: 065
  12. PIPERACILLIN AND TAZOBACTAM [Concomitant]
     Active Substance: PIPERACILLIN SODIUM\TAZOBACTAM SODIUM
  13. SULFAMETHOXAZOLE\TRIMETHOPRIM [Concomitant]
     Active Substance: SULFAMETHOXAZOLE\TRIMETHOPRIM
  14. AMPHOTERICIN B [Concomitant]
     Active Substance: AMPHOTERICIN B
  15. CASPOFUNGIN [Concomitant]
     Active Substance: CASPOFUNGIN
  16. ROCEPHIN [Concomitant]
     Active Substance: CEFTRIAXONE SODIUM
  17. MEROPENEM [Concomitant]
     Active Substance: MEROPENEM

REACTIONS (11)
  - Bacteraemia [Unknown]
  - Febrile neutropenia [Unknown]
  - Hepatic failure [Unknown]
  - Lower gastrointestinal haemorrhage [Unknown]
  - Metabolic disorder [Unknown]
  - Stenotrophomonas bacteraemia [Unknown]
  - Stenotrophomonas maltophilia pneumonia [Unknown]
  - Multiple organ dysfunction syndrome [Unknown]
  - Bacterial infection [Unknown]
  - Pneumonia [Unknown]
  - Pneumonia bacterial [Unknown]
